FAERS Safety Report 10735502 (Version 1)
Quarter: 2015Q1

REPORT INFORMATION
  Report Type: Spontaneous
  Country: US (occurrence: US)
  Receive Date: 20150126
  Receipt Date: 20150126
  Transmission Date: 20150721
  Serious: Yes (Death)
  Sender: FDA-Public Use
  Company Number: US-009507513-1501USA007592

PATIENT
  Age: 41 Year
  Sex: Male

DRUGS (4)
  1. COCAINE [Suspect]
     Active Substance: COCAINE
     Dosage: UNK
  2. DIACETYLMORPHINE [Suspect]
     Active Substance: DIACETYLMORPHINE
     Dosage: UNK
  3. BUPROPION HYDROCHLORIDE. [Suspect]
     Active Substance: BUPROPION HYDROCHLORIDE
     Dosage: UNK
  4. ELAVIL [Suspect]
     Active Substance: AMITRIPTYLINE HYDROCHLORIDE
     Route: 048

REACTIONS (2)
  - Drug abuse [Fatal]
  - Toxicity to various agents [Fatal]
